FAERS Safety Report 24222662 (Version 1)
Quarter: 2024Q3

REPORT INFORMATION
  Report Type: Spontaneous
  Country: CN (occurrence: CN)
  Receive Date: 20240819
  Receipt Date: 20240819
  Transmission Date: 20241017
  Serious: Yes (Other)
  Sender: ROCHE
  Company Number: CN-ROCHE-10000054055

PATIENT
  Age: 37 Year
  Sex: Female

DRUGS (17)
  1. TRASTUZUMAB [Suspect]
     Active Substance: TRASTUZUMAB
     Indication: HER2 positive breast cancer
     Route: 065
  2. PERTUZUMAB [Suspect]
     Active Substance: PERTUZUMAB
     Indication: Breast cancer metastatic
     Route: 065
  3. ADO-TRASTUZUMAB EMTANSINE [Suspect]
     Active Substance: ADO-TRASTUZUMAB EMTANSINE
     Indication: Breast cancer metastatic
     Route: 065
  4. CAPECITABINE [Suspect]
     Active Substance: CAPECITABINE
     Indication: Breast cancer metastatic
     Route: 065
  5. DOCETAXEL [Suspect]
     Active Substance: DOCETAXEL\DOCETAXEL ANHYDROUS
     Indication: HER2 positive breast cancer
     Route: 065
  6. GOSERELIN [Suspect]
     Active Substance: GOSERELIN
     Indication: Breast cancer metastatic
     Route: 065
  7. LETROZOLE [Suspect]
     Active Substance: LETROZOLE
     Indication: Breast cancer metastatic
     Route: 065
  8. PYROTINIB [Suspect]
     Active Substance: PYROTINIB
     Indication: Breast cancer metastatic
     Route: 065
  9. PACLITAXEL [Suspect]
     Active Substance: PACLITAXEL
     Indication: Breast cancer metastatic
     Route: 065
  10. LAPATINIB [Suspect]
     Active Substance: LAPATINIB
     Indication: Breast cancer metastatic
     Route: 065
  11. ERIBULIN [Suspect]
     Active Substance: ERIBULIN
     Indication: Breast cancer metastatic
     Route: 065
  12. TUCATINIB [Suspect]
     Active Substance: TUCATINIB
     Indication: Breast cancer metastatic
     Route: 065
  13. DISITAMAB VEDOTIN [Suspect]
     Active Substance: DISITAMAB VEDOTIN
     Indication: Breast cancer metastatic
     Route: 065
  14. EPIRUBICIN [Concomitant]
     Active Substance: EPIRUBICIN
  15. CYCLOPHOSPHAMIDE [Concomitant]
     Active Substance: CYCLOPHOSPHAMIDE
     Dates: start: 20170306, end: 20170509
  16. TRASTUZUMAB DERUXTECAN [Concomitant]
     Active Substance: TRASTUZUMAB DERUXTECAN
  17. CATEQUENTINIB [Concomitant]
     Active Substance: CATEQUENTINIB

REACTIONS (2)
  - Metastasis [Unknown]
  - Disease progression [Unknown]
